FAERS Safety Report 11582019 (Version 1)
Quarter: 2015Q4

REPORT INFORMATION
  Report Type: Spontaneous
  Country: US (occurrence: US)
  Receive Date: 20151001
  Receipt Date: 20151001
  Transmission Date: 20160304
  Serious: No
  Sender: FDA-Public Use
  Company Number: US-ROCHE-700635

PATIENT
  Age: 61 Year
  Sex: Female

DRUGS (5)
  1. COPEGUS [Suspect]
     Active Substance: RIBAVIRIN
     Indication: HEPATITIS C
     Route: 048
  2. PEGASYS [Suspect]
     Active Substance: PEGINTERFERON ALFA-2A
     Indication: HEPATITIS C
     Route: 058
  3. INFERGEN [Suspect]
     Active Substance: INTERFERON ALFACON-1
     Indication: HEPATITIS C
     Route: 065
  4. VITAMIN E [Concomitant]
     Active Substance: .ALPHA.-TOCOPHEROL
     Route: 065
  5. STROVITE [Concomitant]
     Dosage: DRUG REPORTED AS STROVITE 1
     Route: 065

REACTIONS (6)
  - Nocturia [Not Recovered/Not Resolved]
  - Depression [Not Recovered/Not Resolved]
  - Anaemia [Unknown]
  - Lethargy [Not Recovered/Not Resolved]
  - Nausea [Not Recovered/Not Resolved]
  - Feeding disorder [Not Recovered/Not Resolved]

NARRATIVE: CASE EVENT DATE: 201003
